FAERS Safety Report 4924534-6 (Version None)
Quarter: 2006Q1

REPORT INFORMATION
  Report Type: 
  Country: None (occurrence: None)
  Receive Date: 20060222
  Receipt Date: 20060206
  Transmission Date: 20060701
  Serious: Yes (Other)
  Sender: FDA-Public Use
  Company Number: 8014513

PATIENT
  Age: 4 Year
  Sex: Female

DRUGS (6)
  1. KEPPRA [Suspect]
     Dosage: 125 MG 1/D PO
     Route: 048
     Dates: start: 20051029
  2. AZITHROMYCIN [Concomitant]
  3. TOPIRAMATE [Concomitant]
  4. MORPHINE [Concomitant]
  5. RANITIDINE [Concomitant]
  6. EPILIM [Concomitant]

REACTIONS (3)
  - DEVELOPMENTAL DELAY [None]
  - MOVEMENT DISORDER [None]
  - PRECOCIOUS PUBERTY [None]
